FAERS Safety Report 5723410-9 (Version None)
Quarter: 2008Q2

REPORT INFORMATION
  Report Type: 
  Country: None (occurrence: None)
  Receive Date: 20080430
  Receipt Date: 20080422
  Transmission Date: 20081010
  Serious: Yes (Other)
  Sender: FDA-Public Use
  Company Number: PHHY2008JP03656

PATIENT
  Age: 71 Year
  Sex: Female
  Weight: 42 kg

DRUGS (5)
  1. LOCHOL [Suspect]
     Indication: LIPIDS ABNORMAL
     Dosage: 20 MG DAILY
     Route: 048
     Dates: start: 20080208, end: 20080217
  2. LOCHOL [Suspect]
     Dosage: 30 MG DAILY
     Route: 048
     Dates: start: 20080218, end: 20080307
  3. APLACE [Concomitant]
     Indication: GASTRITIS
     Dosage: 200 MG
     Route: 048
     Dates: start: 20080308, end: 20080311
  4. EXCELASE [Concomitant]
     Indication: GASTRITIS
     Route: 048
     Dates: start: 20080308, end: 20080311
  5. GLYCYRON [Concomitant]
     Indication: HEPATIC FUNCTION ABNORMAL
     Route: 048
     Dates: start: 20080311, end: 20080412

REACTIONS (5)
  - ABDOMINAL PAIN UPPER [None]
  - ALANINE AMINOTRANSFERASE INCREASED [None]
  - ASPARTATE AMINOTRANSFERASE INCREASED [None]
  - HEPATIC FAILURE [None]
  - MALAISE [None]
